FAERS Safety Report 15622534 (Version 1)
Quarter: 2018Q4

REPORT INFORMATION
  Report Type: Spontaneous
  Country: US (occurrence: US)
  Receive Date: 20181115
  Receipt Date: 20181115
  Transmission Date: 20190205
  Serious: Yes (Other)
  Sender: FDA-Public Use
  Company Number: US-BAYER-2018-208014

PATIENT
  Age: 57 Year
  Sex: Male

DRUGS (1)
  1. BETASERON [Suspect]
     Active Substance: INTERFERON BETA-1B
     Indication: MULTIPLE SCLEROSIS
     Dosage: 0.3 MG, UNK

REACTIONS (4)
  - Multiple sclerosis relapse [None]
  - Vision blurred [Recovered/Resolved]
  - Hypoaesthesia [None]
  - Migraine with aura [Recovered/Resolved]

NARRATIVE: CASE EVENT DATE: 20181025
